FAERS Safety Report 9734237 (Version 1)
Quarter: 2013Q4

REPORT INFORMATION
  Report Type: Spontaneous
  Country: US (occurrence: US)
  Receive Date: 20131205
  Receipt Date: 20131205
  Transmission Date: 20140711
  Serious: Yes (Hospitalization, Other)
  Sender: FDA-Public Use
  Company Number: US-GILEAD-2013-0089101

PATIENT
  Sex: Female

DRUGS (1)
  1. LETAIRIS [Suspect]
     Indication: RENAL FAILURE CHRONIC
     Dosage: 10 MG, QD
     Route: 048
     Dates: start: 20120611

REACTIONS (4)
  - Cardiac failure congestive [Unknown]
  - Pneumonia [Unknown]
  - Candida infection [Unknown]
  - Rash [Unknown]
